FAERS Safety Report 25890556 (Version 1)
Quarter: 2025Q4

REPORT INFORMATION
  Report Type: Spontaneous
  Country: US (occurrence: None)
  Receive Date: 20251006
  Receipt Date: 20251006
  Transmission Date: 20260118
  Serious: Yes (Hospitalization)
  Sender: FDA-CTU
  Company Number: None

PATIENT
  Age: 77 Year
  Sex: Female
  Weight: 72.45 kg

DRUGS (9)
  1. AUSTEDO [Suspect]
     Active Substance: DEUTETRABENAZINE
     Indication: Tardive dyskinesia
     Dosage: FREQUENCY : DAILY;?
     Route: 048
     Dates: start: 20251001, end: 20251006
  2. AMLODIPINE [Concomitant]
     Active Substance: AMLODIPINE BESYLATE
  3. BENZTROPINE [Concomitant]
     Active Substance: BENZTROPINE
  4. DONEPEZIL [Concomitant]
     Active Substance: DONEPEZIL
  5. LOSARTAN [Concomitant]
     Active Substance: LOSARTAN
  6. LURASIDONE [Concomitant]
     Active Substance: LURASIDONE
  7. OMEPRAZOLE [Concomitant]
     Active Substance: OMEPRAZOLE
  8. TERBINAFINE [Concomitant]
     Active Substance: TERBINAFINE
  9. FLUOXETINE [Concomitant]
     Active Substance: FLUOXETINE HYDROCHLORIDE

REACTIONS (2)
  - Urosepsis [None]
  - Therapy interrupted [None]

NARRATIVE: CASE EVENT DATE: 20251005
